FAERS Safety Report 5018918-8 (Version None)
Quarter: 2006Q2

REPORT INFORMATION
  Report Type: 
  Country: None (occurrence: None)
  Receive Date: 20060606
  Receipt Date: 20060523
  Transmission Date: 20061013
  Serious: Yes (Hospitalization)
  Sender: FDA-Public Use
  Company Number: JP-BRISTOL-MYERS SQUIBB COMPANY-13394903

PATIENT
  Age: 54 Year
  Sex: Male
  Weight: 80 kg

DRUGS (4)
  1. ENDOXAN [Suspect]
     Indication: STEM CELL TRANSPLANT
     Dates: start: 20000101, end: 20000101
  2. CYTARABINE [Suspect]
     Indication: STEM CELL TRANSPLANT
     Dates: start: 20000101, end: 20000101
  3. TACROLIMUS [Suspect]
     Indication: STEM CELL TRANSPLANT
     Route: 048
     Dates: start: 20000101, end: 20000101
  4. METHOTREXATE [Concomitant]
     Dates: start: 20000301, end: 20000101

REACTIONS (1)
  - NEPHROPATHY [None]
